FAERS Safety Report 9070986 (Version 1)
Quarter: 2013Q1

REPORT INFORMATION
  Report Type: Report from Study
  Country: JP (occurrence: JP)
  Receive Date: 20130129
  Receipt Date: 20130129
  Transmission Date: 20140127
  Serious: Yes (Other)
  Sender: FDA-Public Use
  Company Number: JP-GLAXOSMITHKLINE-B0860880A

PATIENT
  Age: 21 None
  Sex: Male
  Weight: 54 kg

DRUGS (13)
  1. PAXIL [Suspect]
     Indication: SOCIAL PHOBIA
     Dosage: 10MG PER DAY
     Route: 048
     Dates: start: 20100414, end: 20100420
  2. PAXIL [Suspect]
     Indication: SOCIAL PHOBIA
     Dosage: 20MG PER DAY
     Route: 048
     Dates: start: 20100421, end: 20100727
  3. PAXIL [Suspect]
     Indication: SOCIAL PHOBIA
     Dosage: 15MG PER DAY
     Route: 048
     Dates: start: 20100728, end: 20100810
  4. PAXIL [Suspect]
     Indication: SOCIAL PHOBIA
     Dosage: 10MG PER DAY
     Route: 048
     Dates: start: 20100811, end: 20100824
  5. PAXIL [Suspect]
     Indication: SOCIAL PHOBIA
     Dosage: 10MG PER DAY
     Route: 048
     Dates: start: 20100825, end: 20100917
  6. PAXIL [Suspect]
     Indication: SOCIAL PHOBIA
     Dosage: 5MG PER DAY
     Route: 048
     Dates: start: 20100918, end: 20101104
  7. PAXIL [Suspect]
     Indication: SOCIAL PHOBIA
     Dosage: 2.5MG PER DAY
     Route: 048
     Dates: start: 20101105, end: 20101224
  8. PAXIL [Suspect]
     Indication: SOCIAL PHOBIA
     Dosage: 2.5MG FIVE TIMES PER WEEK
     Route: 048
     Dates: start: 20101225, end: 20110121
  9. PAXIL [Suspect]
     Indication: SOCIAL PHOBIA
     Dosage: 2.5MG PER DAY
     Route: 048
     Dates: start: 20110122, end: 20110521
  10. LANDSEN [Concomitant]
     Indication: SOCIAL PHOBIA
     Route: 048
     Dates: start: 20100414, end: 20100518
  11. RILMAZAFONE HYDROCHLORIDE [Concomitant]
     Route: 048
     Dates: start: 20100714, end: 20100720
  12. INTAL [Concomitant]
     Route: 031
     Dates: start: 20100609, end: 20100614
  13. INTAL [Concomitant]
     Route: 045
     Dates: start: 20100609, end: 20100614

REACTIONS (7)
  - Serotonin syndrome [Unknown]
  - Hot flush [Recovered/Resolved]
  - Hyperhidrosis [Recovered/Resolved]
  - Sleep phase rhythm disturbance [Recovered/Resolved]
  - Impulse-control disorder [Recovering/Resolving]
  - Mania [Unknown]
  - Nausea [Recovered/Resolved]
